FAERS Safety Report 9856926 (Version 1)
Quarter: 2014Q1

REPORT INFORMATION
  Report Type: Spontaneous
  Country: US (occurrence: None)
  Receive Date: 20140128
  Receipt Date: 20140128
  Transmission Date: 20141002
  Serious: No
  Sender: FDA-Public Use
  Company Number: CC13-1366

PATIENT
  Sex: Female

DRUGS (1)
  1. IMIQUIMOD CREAM 5% (TOLMAR INC) [Suspect]
     Indication: BASAL CELL CARCINOMA
     Dosage: ONCE DAILY FOR 8 HOURS, EVERY 5 DAYS FOR 6 WEEKS

REACTIONS (1)
  - Wound infection [None]
